FAERS Safety Report 5705169-4 (Version None)
Quarter: 2008Q2

REPORT INFORMATION
  Report Type: 
  Country: None (occurrence: None)
  Receive Date: 20080410
  Receipt Date: 20080401
  Transmission Date: 20081010
  Serious: Yes (Hospitalization, Other)
  Sender: FDA-Public Use
  Company Number: WAES 0309USA01967

PATIENT
  Age: 57 Year
  Sex: Male

DRUGS (11)
  1. ZETIA [Suspect]
     Indication: BLOOD CHOLESTEROL INCREASED
     Dosage: 10 MG/DAILY/PO
     Route: 048
  2. XANAX [Suspect]
     Dosage: PO
  3. PLACEBO [Suspect]
     Dosage: PO
     Route: 048
  4. IRINOTECAN HYDROCHLORIDE [Suspect]
     Dosage: IV
     Route: 042
  5. FLUOROURACIL [Suspect]
     Dosage: IV
     Route: 042
  6. LEUCOVORIN CALCIUM [Suspect]
     Dosage: IV
     Route: 042
  7. TOPROL-XL [Suspect]
     Dosage: P
     Route: 048
  8. PROTONIX [Suspect]
     Dosage: PO
     Route: 048
  9. CIPROFLOXACIN HYDROCHLORIDE [Suspect]
     Dosage: PO
     Route: 048
  10. ASPIRIN [Suspect]
     Dosage: PO
     Route: 048
  11. AMIODARONE HCL [Suspect]
     Dosage: PO
     Route: 048

REACTIONS (3)
  - ANGINA PECTORIS [None]
  - CONSTIPATION [None]
  - INTESTINAL OBSTRUCTION [None]
